FAERS Safety Report 5047096-4 (Version None)
Quarter: 2006Q3

REPORT INFORMATION
  Report Type: 
  Country: None (occurrence: None)
  Receive Date: 20060703
  Receipt Date: 20060622
  Transmission Date: 20061208
  Serious: Yes (Other)
  Sender: FDA-Public Use
  Company Number: 2005136582

PATIENT
  Sex: Male

DRUGS (7)
  1. NARDIL [Suspect]
     Dosage: (15 MG)
  2. TRAZODONE HCL [Concomitant]
  3. ANTIDEPRESSANTS (ANTIDEPRESSANTS) [Suspect]
  4. WELLBUTRIN [Suspect]
  5. EFFEXOR [Suspect]
  6. TRICYCLIC ANTIDEPRESSANTS (TRICYCLIC ANTIDEPRESSANTS) [Suspect]
  7. SSRI (SSRI) [Concomitant]

REACTIONS (11)
  - ABDOMINAL PAIN [None]
  - APHASIA [None]
  - BALANCE DISORDER [None]
  - DEPRESSION [None]
  - DRUG EFFECT DECREASED [None]
  - EYE IRRITATION [None]
  - FATIGUE [None]
  - FLATULENCE [None]
  - HEADACHE [None]
  - HYPERVENTILATION [None]
  - PHARMACEUTICAL PRODUCT COMPLAINT [None]
